FAERS Safety Report 7053519-1 (Version None)
Quarter: 2010Q4

REPORT INFORMATION
  Report Type: 
  Country: None (occurrence: None)
  Receive Date: 20101020
  Receipt Date: 20101012
  Transmission Date: 20110411
  Serious: No
  Sender: FDA-Public Use
  Company Number: US-PFIZER INC-2010103579

PATIENT
  Sex: Female
  Weight: 58.957 kg

DRUGS (2)
  1. FLAGYL [Suspect]
     Indication: GIARDIASIS
     Dosage: 500 MG, 4X/DAY
     Route: 048
     Dates: start: 20100813
  2. CELEBREX [Concomitant]
     Indication: ARTHRITIS
     Dosage: UNK

REACTIONS (4)
  - ABNORMAL DREAMS [None]
  - FATIGUE [None]
  - NIGHTMARE [None]
  - SOMNOLENCE [None]
